FAERS Safety Report 8200652-4 (Version None)
Quarter: 2012Q1

REPORT INFORMATION
  Report Type: 
  Country: None (occurrence: None)
  Receive Date: 20120306
  Receipt Date: 20120220
  Transmission Date: 20120608
  Serious: Yes (Hospitalization)
  Sender: FDA-Public Use
  Company Number: B0782562A

PATIENT
  Sex: Male

DRUGS (17)
  1. PROPOFOL [Concomitant]
  2. ALLOPURINOL [Concomitant]
  3. VERAPAMIL HYDROCHLORIDE [Concomitant]
  4. MIDAZOLAM [Concomitant]
  5. KETAMINE HCL [Concomitant]
  6. GELOFUSINE [Concomitant]
  7. PRAVASTATIN [Concomitant]
  8. BECLOMETASONE DIPROPION. [Concomitant]
  9. OXAZEPAM [Concomitant]
  10. CANDESARTAN CILEXETIL [Concomitant]
  11. CEFUROXIME SODIUM [Suspect]
     Indication: ANTIBIOTIC PROPHYLAXIS
     Dosage: INTRAVENOUS
     Route: 042
     Dates: start: 20111201
  12. LYSINE ASPIRIN [Concomitant]
  13. TIOTROPIUM [Concomitant]
  14. SUFENTANIL CITRATE [Concomitant]
  15. INT./LONG-ACTING INSULIN [Concomitant]
  16. CISATRACURIUM BESYLATE [Concomitant]
  17. VENLAFAXINE HCL [Concomitant]

REACTIONS (3)
  - SKIN TEST POSITIVE [None]
  - ANAPHYLACTIC SHOCK [None]
  - BRONCHOSPASM [None]
